FAERS Safety Report 4657789-6 (Version None)
Quarter: 2005Q2

REPORT INFORMATION
  Report Type: 
  Country: None (occurrence: None)
  Receive Date: 20050505
  Receipt Date: 20040423
  Transmission Date: 20051028
  Serious: Yes (Other)
  Sender: FDA-Public Use
  Company Number: US-SHR-03-006001

PATIENT
  Age: 65 Year
  Sex: Female

DRUGS (6)
  1. REFLUDAN [Suspect]
     Indication: HEPARIN-INDUCED THROMBOCYTOPENIA
     Dosage: 0.35 MG/KG, INTRAVENOUS
     Route: 042
     Dates: start: 20030404
  2. HALDOL ^MCNEIL^ (HALOPERIDOL) [Concomitant]
  3. FUROSEMIDE [Concomitant]
  4. CIPROFLOXACIN [Concomitant]
  5. METOPROLOL [Concomitant]
  6. MULTIVITAMINS (RETINOL, PANTHENOL) [Concomitant]

REACTIONS (1)
  - HYPERBILIRUBINAEMIA [None]
